FAERS Safety Report 19642490 (Version 1)
Quarter: 2021Q3

REPORT INFORMATION
  Report Type: Spontaneous
  Country: GB (occurrence: CA)
  Receive Date: 20210731
  Receipt Date: 20210731
  Transmission Date: 20211014
  Serious: Yes (Hospitalization)
  Sender: FDA-Public Use
  Company Number: GB-ACCORD-233458

PATIENT
  Age: 75 Year
  Sex: Male

DRUGS (15)
  1. ISOSORBIDE. [Concomitant]
     Active Substance: ISOSORBIDE
  2. MIRTAZAPINE. [Concomitant]
     Active Substance: MIRTAZAPINE
  3. CODEINE PHOSPHATE/PARACETAMOL [Concomitant]
     Active Substance: ACETAMINOPHEN\CODEINE PHOSPHATE
  4. DILTIAZEM. [Concomitant]
     Active Substance: DILTIAZEM
  5. LOPERAMIDE [Concomitant]
     Active Substance: LOPERAMIDE
  6. DIGOXIN. [Concomitant]
     Active Substance: DIGOXIN
  7. DULOXETINE. [Concomitant]
     Active Substance: DULOXETINE
  8. GLYCERYL TRINITRATE [Concomitant]
     Active Substance: NITROGLYCERIN
  9. PERINDOPRIL [Concomitant]
     Active Substance: PERINDOPRIL
  10. DALTEPARIN [Concomitant]
     Active Substance: DALTEPARIN
  11. ALLOPURINOL. [Concomitant]
     Active Substance: ALLOPURINOL
  12. SALBUTAMOL [Concomitant]
     Active Substance: ALBUTEROL
  13. FLUOROURACIL. [Suspect]
     Active Substance: FLUOROURACIL
     Indication: PRODUCT USED FOR UNKNOWN INDICATION
  14. ATORVASTATIN [Concomitant]
     Active Substance: ATORVASTATIN
  15. OMEPRAZOLE. [Concomitant]
     Active Substance: OMEPRAZOLE

REACTIONS (1)
  - Rash [Unknown]
